FAERS Safety Report 9485890 (Version 4)
Quarter: 2014Q2

REPORT INFORMATION
  Report Type: Spontaneous
  Country: US (occurrence: US)
  Receive Date: 20130829
  Receipt Date: 20140616
  Transmission Date: 20141212
  Serious: Yes (Other)
  Sender: FDA-Public Use
  Company Number: US-009507513-2011SP016575

PATIENT
  Sex: Female
  Weight: 68.4 kg

DRUGS (1)
  1. NUVARING [Suspect]
     Indication: CONTRACEPTION
     Dosage: UNK
     Dates: start: 200303, end: 20090522

REACTIONS (21)
  - Asthma [Unknown]
  - Pulmonary embolism [Unknown]
  - Deep vein thrombosis [Recovered/Resolved]
  - Viral upper respiratory tract infection [Recovered/Resolved with Sequelae]
  - Gastrooesophageal reflux disease [Unknown]
  - Rash [Unknown]
  - Bronchopneumonia [Unknown]
  - Visual impairment [Unknown]
  - Periarthritis [Not Recovered/Not Resolved]
  - Arthralgia [Not Recovered/Not Resolved]
  - Constipation [Unknown]
  - Diarrhoea [Unknown]
  - Libido decreased [Unknown]
  - Vulvovaginal dryness [Unknown]
  - Inappropriate schedule of drug administration [Unknown]
  - Vaginal discharge [Unknown]
  - Vaginal haemorrhage [Unknown]
  - Nausea [Unknown]
  - Vomiting [Unknown]
  - Deep vein thrombosis [Unknown]
  - Laser therapy [Unknown]
